FAERS Safety Report 12398570 (Version 1)
Quarter: 2016Q2

REPORT INFORMATION
  Report Type: Spontaneous
  Country: GB (occurrence: GB)
  Receive Date: 20160524
  Receipt Date: 20160524
  Transmission Date: 20160815
  Serious: Yes (Other)
  Sender: FDA-Public Use
  Company Number: GB-PERRIGO-16GB016443

PATIENT
  Age: 50 Year
  Sex: Female

DRUGS (1)
  1. ACETAMINOPHEN. [Suspect]
     Active Substance: ACETAMINOPHEN
     Dosage: 60 DF, UNK
     Route: 065

REACTIONS (2)
  - Renal disorder [Unknown]
  - Liver injury [Recovered/Resolved]
